FAERS Safety Report 9854425 (Version 1)
Quarter: 2014Q1

REPORT INFORMATION
  Report Type: Spontaneous
  Country: US (occurrence: US)
  Receive Date: 20140130
  Receipt Date: 20140130
  Transmission Date: 20141002
  Serious: No
  Sender: FDA-Public Use
  Company Number: US-BIOGENIDEC-2014BI009079

PATIENT
  Sex: Female

DRUGS (17)
  1. TYSABRI [Suspect]
     Indication: MULTIPLE SCLEROSIS
     Route: 042
     Dates: start: 201107
  2. REPLAX [Concomitant]
     Dates: start: 20130306
  3. VITAMIN B-12 [Concomitant]
     Dates: start: 20130320
  4. COLACE [Concomitant]
     Dates: start: 20130816
  5. DOCUSATE [Concomitant]
     Dates: start: 20130816
  6. FIORINAL [Concomitant]
     Dates: start: 20130905
  7. ZANAFLEX [Concomitant]
     Dates: start: 20130218
  8. LORTAB [Concomitant]
     Dates: start: 20130905
  9. PRIMIDONE [Concomitant]
     Dates: start: 20140113
  10. WELLBUTRIN [Concomitant]
     Dates: start: 20140113
  11. BACLOFEN [Concomitant]
     Dates: start: 20140113
  12. LIDOCAIN CREAM [Concomitant]
     Dates: start: 20130523
  13. ESTRADIOL [Concomitant]
     Dates: start: 20130625
  14. PAXIL [Concomitant]
     Dates: start: 20130725
  15. PHENERGAN [Concomitant]
     Dates: start: 20130725
  16. XANAX [Concomitant]
     Dates: start: 20130730
  17. LIDOCAINE AND PRILOCAINE [Concomitant]
     Dates: start: 20130801

REACTIONS (32)
  - Skin discolouration [Unknown]
  - Muscle spasticity [Unknown]
  - Back pain [Unknown]
  - Pain [Unknown]
  - Hyposmia [Unknown]
  - Dysgeusia [Unknown]
  - Dysphagia [Unknown]
  - Gait disturbance [Unknown]
  - Gastrointestinal disorder [Unknown]
  - Bladder disorder [Unknown]
  - Sleep disorder [Unknown]
  - Muscle spasms [Unknown]
  - Burning sensation [Unknown]
  - Anxiety [Unknown]
  - Memory impairment [Unknown]
  - Temperature intolerance [Unknown]
  - Urinary hesitation [Unknown]
  - Micturition urgency [Unknown]
  - Tinnitus [Unknown]
  - Vision blurred [Unknown]
  - Diplopia [Unknown]
  - Blindness [Unknown]
  - Photophobia [Unknown]
  - Hypoaesthesia [Unknown]
  - Paraesthesia [Unknown]
  - Coordination abnormal [Unknown]
  - Band sensation [Unknown]
  - Dyspnoea [Unknown]
  - Multiple sclerosis relapse [Unknown]
  - Pruritus [Unknown]
  - Headache [Unknown]
  - Dizziness [Unknown]
